FAERS Safety Report 24612440 (Version 1)
Quarter: 2024Q4

REPORT INFORMATION
  Report Type: Spontaneous
  Country: US (occurrence: US)
  Receive Date: 20241113
  Receipt Date: 20241113
  Transmission Date: 20250115
  Serious: No
  Sender: DR REDDYS
  Company Number: US-DRL-USA-SPO/USA/24/0016178

PATIENT
  Age: 21 Year
  Sex: Female

DRUGS (1)
  1. ACCUTANE [Suspect]
     Active Substance: ISOTRETINOIN
     Indication: Product used for unknown indication
     Route: 065
     Dates: start: 20240923

REACTIONS (10)
  - Keratosis pilaris [Unknown]
  - Acne cystic [Unknown]
  - Pustule [Unknown]
  - Erythema [Unknown]
  - Pigmentation disorder [Unknown]
  - Cyst [Unknown]
  - Acne [Unknown]
  - Seborrhoea [Unknown]
  - Depression [Unknown]
  - Lymphadenopathy [Unknown]

NARRATIVE: CASE EVENT DATE: 20241028
